FAERS Safety Report 16874149 (Version 2)
Quarter: 2019Q4

REPORT INFORMATION
  Report Type: Report from Study
  Country: BE (occurrence: BE)
  Receive Date: 20191001
  Receipt Date: 20191014
  Transmission Date: 20200122
  Serious: Yes (Hospitalization)
  Sender: FDA-Public Use
  Company Number: BE-BAYER-2019-176104

PATIENT
  Age: 57 Year
  Sex: Male

DRUGS (2)
  1. LAROTRECTINIB [Suspect]
     Active Substance: LAROTRECTINIB
     Indication: LUNG CANCER METASTATIC
     Dosage: 100 MG, BID
     Route: 048
     Dates: start: 20190808, end: 201909
  2. LAROTRECTINIB [Suspect]
     Active Substance: LAROTRECTINIB
     Indication: LUNG CANCER METASTATIC
     Dosage: 100 MG, BID
     Route: 048
     Dates: start: 201909

REACTIONS (3)
  - Nausea [None]
  - Abdominal pain [None]
  - Vomiting [None]

NARRATIVE: CASE EVENT DATE: 20190927
